FAERS Safety Report 21512770 (Version 1)
Quarter: 2022Q4

REPORT INFORMATION
  Report Type: Spontaneous
  Country: US (occurrence: US)
  Receive Date: 20221027
  Receipt Date: 20221027
  Transmission Date: 20230112
  Serious: Yes (Other)
  Sender: FDA-Public Use
  Company Number: US-ASTELLAS-2022US038029

PATIENT
  Age: 67 Year
  Sex: Male

DRUGS (2)
  1. XOSPATA [Suspect]
     Active Substance: GILTERITINIB
     Indication: Acute myeloid leukaemia
     Dosage: UNK UNK, UNKNOWN FREQ.
     Route: 065
  2. XOSPATA [Suspect]
     Active Substance: GILTERITINIB
     Indication: FLT3 gene mutation

REACTIONS (4)
  - Cardiac ventricular thrombosis [Recovered/Resolved]
  - Pericardial effusion [Unknown]
  - Dyspnoea [Recovered/Resolved]
  - Ejection fraction decreased [Unknown]
